FAERS Safety Report 8976939 (Version 1)
Quarter: 2012Q4

REPORT INFORMATION
  Report Type: 
  Country: US (occurrence: US)
  Receive Date: 20121220
  Receipt Date: 20121220
  Transmission Date: 20130627
  Serious: Yes (Hospitalization)
  Sender: FDA-Public Use
  Company Number: US-BAYER-2012-128643

PATIENT
  Age: 35 Year
  Sex: Female
  Weight: 136 kg

DRUGS (3)
  1. GIANVI [Suspect]
  2. YAZ [Suspect]
  3. AZITHROMYCIN [Concomitant]
     Dosage: 250 mg, UNK
     Dates: start: 20101230

REACTIONS (1)
  - Pulmonary embolism [None]
